FAERS Safety Report 6687207-8 (Version None)
Quarter: 2010Q2

REPORT INFORMATION
  Report Type: 
  Country: None (occurrence: None)
  Receive Date: 20100419
  Receipt Date: 20100405
  Transmission Date: 20101027
  Serious: Yes (Hospitalization)
  Sender: FDA-Public Use
  Company Number: ES-PFIZER INC-2010043080

PATIENT
  Age: 85 Year
  Sex: Female

DRUGS (6)
  1. NEURONTIN [Suspect]
     Dosage: 900 MG, 1X/DAY
     Route: 048
     Dates: start: 20041203
  2. QUETIAPINE [Interacting]
     Indication: AGGRESSION
     Dosage: 25 MG, 1X/DAY
     Route: 048
     Dates: start: 20090605, end: 20090605
  3. FENTANYL [Interacting]
     Indication: PAIN
     Dosage: 50 MG, 1X/DAY
     Route: 062
     Dates: start: 20080507, end: 20090606
  4. TRANSTEC TTS [Interacting]
     Indication: PAIN
     Dosage: 35 MG, 1X/DAY
     Route: 062
     Dates: start: 20071101, end: 20090606
  5. ENALAPRIL [Concomitant]
     Indication: HYPERTENSION
     Dosage: 20 MG, 1X/DAY
     Route: 048
     Dates: start: 20080501
  6. ASPIRIN [Concomitant]
     Indication: PROPHYLAXIS
     Dosage: 150 MG, 1X/DAY
     Route: 048

REACTIONS (2)
  - DEPRESSED LEVEL OF CONSCIOUSNESS [None]
  - DRUG INTERACTION [None]
